FAERS Safety Report 7113252-4 (Version None)
Quarter: 2010Q4

REPORT INFORMATION
  Report Type: 
  Country: None (occurrence: None)
  Receive Date: 20101119
  Receipt Date: 20100528
  Transmission Date: 20110411
  Serious: No
  Sender: FDA-Public Use
  Company Number: A0852398A

PATIENT
  Age: 25 Year
  Sex: Female
  Weight: 72.3 kg

DRUGS (2)
  1. WELLBUTRIN SR [Suspect]
     Indication: DEPRESSION
     Dosage: 150MG TWICE PER DAY
     Route: 048
     Dates: start: 20091111, end: 20100329
  2. NO CONCURRENT MEDICATION [Concomitant]

REACTIONS (1)
  - DRUG EXPOSURE DURING PREGNANCY [None]
